FAERS Safety Report 23579479 (Version 1)
Quarter: 2024Q1

REPORT INFORMATION
  Report Type: Spontaneous
  Country: US (occurrence: None)
  Receive Date: 20240228
  Receipt Date: 20240228
  Transmission Date: 20240409
  Serious: Yes (Other)
  Sender: FDA-Public Use
  Company Number: None

PATIENT
  Age: 56 Year
  Sex: Female
  Weight: 66.6 kg

DRUGS (2)
  1. MIRALAX [Suspect]
     Active Substance: POLYETHYLENE GLYCOL 3350
     Indication: Hypothyroidism
     Dosage: 1 OUNCE  DAILY ORAL?
     Route: 048
     Dates: start: 20240226, end: 20240228
  2. LEVOTHYROXINE [Concomitant]
     Active Substance: LEVOTHYROXINE\LEVOTHYROXINE SODIUM

REACTIONS (6)
  - Throat irritation [None]
  - Dysphonia [None]
  - Nausea [None]
  - Impaired work ability [None]
  - Product availability issue [None]
  - Burn oral cavity [None]

NARRATIVE: CASE EVENT DATE: 20240227
